FAERS Safety Report 23769300 (Version 1)
Quarter: 2024Q2

REPORT INFORMATION
  Report Type: Spontaneous
  Country: US (occurrence: US)
  Receive Date: 20240422
  Receipt Date: 20240422
  Transmission Date: 20240716
  Serious: Yes (Other)
  Sender: FDA-Public Use
  Company Number: US-PROVEPHARM, INC.-2024-APO-000027

PATIENT

DRUGS (4)
  1. PHENYLEPHRINE HYDROCHLORIDE [Suspect]
     Active Substance: PHENYLEPHRINE HYDROCHLORIDE
     Indication: Hypotension
     Route: 065
  2. PHENYLEPHRINE HYDROCHLORIDE [Suspect]
     Active Substance: PHENYLEPHRINE HYDROCHLORIDE
     Indication: Bradycardia
  3. EPINEPHRINE [Suspect]
     Active Substance: EPINEPHRINE
     Indication: Bradycardia
     Route: 065
  4. EPINEPHRINE [Suspect]
     Active Substance: EPINEPHRINE
     Indication: Hypotension

REACTIONS (3)
  - Hypotension [Unknown]
  - Treatment failure [Unknown]
  - Bradycardia [Unknown]
